FAERS Safety Report 5971825-6 (Version None)
Quarter: 2008Q4

REPORT INFORMATION
  Report Type: 
  Country: None (occurrence: None)
  Receive Date: 20081201
  Receipt Date: 20081125
  Transmission Date: 20090506
  Serious: Yes (Other)
  Sender: FDA-Public Use
  Company Number: BR-BRISTOL-MYERS SQUIBB COMPANY-14422950

PATIENT
  Age: 3 Decade
  Sex: Female

DRUGS (2)
  1. REYATAZ [Suspect]
     Indication: ACQUIRED IMMUNODEFICIENCY SYNDROME
     Route: 048
     Dates: start: 20080101
  2. BIOVIR [Suspect]
     Indication: ACQUIRED IMMUNODEFICIENCY SYNDROME
     Dosage: 1 DOSAGE FORM=LAMIVUDINE 150 MG + ZIDOVUDINE 300 MG
     Dates: start: 20080101

REACTIONS (2)
  - BLOOD BILIRUBIN INCREASED [None]
  - LEPROSY [None]
